FAERS Safety Report 9838765 (Version 1)
Quarter: 2013Q4

REPORT INFORMATION
  Report Type: Spontaneous
  Country: US (occurrence: None)
  Receive Date: 20131206
  Receipt Date: 20131206
  Transmission Date: 20140711
  Serious: Yes (Other)
  Sender: FDA-Public Use
  Company Number: S07-USA-00541-01

PATIENT
  Age: 69 Year
  Sex: Female

DRUGS (5)
  1. NAMENDA [Suspect]
     Indication: AMNESIA
     Dosage: 1 IN 1 D
     Route: 048
     Dates: start: 200605, end: 2006
  2. NAMENDA [Suspect]
     Indication: AMNESIA
     Dosage: (10 MG, 2 IN 1 D)
     Route: 048
     Dates: start: 2006, end: 20070130
  3. EVISTA (RALOXIFENE HYDROCHLORIDE) [Concomitant]
  4. MULTIVITAMINS [Concomitant]
  5. CALCIUM [Concomitant]

REACTIONS (2)
  - Blood pressure increased [None]
  - Feeling jittery [None]
